FAERS Safety Report 7945209-5 (Version None)
Quarter: 2011Q4

REPORT INFORMATION
  Report Type: 
  Country: None (occurrence: None)
  Receive Date: 20111129
  Receipt Date: 20110322
  Transmission Date: 20120403
  Serious: No
  Sender: FDA-Public Use
  Company Number: US-GLAXOSMITHKLINE-A0919444A

PATIENT
  Age: 71 Year
  Sex: Female

DRUGS (13)
  1. XALATAN [Concomitant]
  2. CARVEDILOL [Concomitant]
  3. SENIOR MULTIVITAMIN [Concomitant]
  4. STOOL SOFTENER [Concomitant]
  5. FLUTICASONE PROPIONATE [Concomitant]
  6. DIAVAN [Concomitant]
  7. VERAPAMIL [Concomitant]
  8. COUMADIN [Concomitant]
  9. ACETAMINOPHEN [Concomitant]
  10. NEXIUM [Concomitant]
  11. METAMUCIL-2 [Concomitant]
  12. CLONIDINE [Concomitant]
  13. FLOVENT [Suspect]
     Indication: EMPHYSEMA
     Dosage: 1PUFF TWICE PER DAY
     Route: 055
     Dates: start: 20100601, end: 20101001

REACTIONS (1)
  - BLOOD PRESSURE INCREASED [None]
